FAERS Safety Report 7791719-3 (Version None)
Quarter: 2011Q4

REPORT INFORMATION
  Report Type: 
  Country: None (occurrence: None)
  Receive Date: 20111003
  Receipt Date: 20110920
  Transmission Date: 20120403
  Serious: Yes (Other)
  Sender: FDA-Public Use
  Company Number: US-BAYER-2011-032989

PATIENT
  Age: 21 Year
  Sex: Female
  Weight: 170.7 kg

DRUGS (5)
  1. YAZ [Suspect]
     Indication: ACNE
     Dosage: UNK
     Dates: start: 20080101, end: 20090101
  2. TYLENOL-500 [Concomitant]
     Dosage: UNK UNK, PRN
     Route: 048
  3. TRAZODONE HYDROCHLORIDE [Concomitant]
     Dosage: 100 MG, PRN
     Route: 048
  4. OXYCODONE HCL [Concomitant]
     Dosage: UNK UNK, PRN
     Route: 048
  5. PROZAC [Concomitant]
     Dosage: 20 MG, QD
     Route: 048

REACTIONS (4)
  - PAIN [None]
  - INJURY [None]
  - GALLBLADDER DISORDER [None]
  - CHOLELITHIASIS [None]
